FAERS Safety Report 12874046 (Version 4)
Quarter: 2017Q1

REPORT INFORMATION
  Report Type: Spontaneous
  Country: US (occurrence: US)
  Receive Date: 20161021
  Receipt Date: 20170316
  Transmission Date: 20170428
  Serious: Yes (Other)
  Sender: FDA-Public Use
  Company Number: US-JNJFOC-20161017626

PATIENT
  Sex: Female
  Weight: 65.77 kg

DRUGS (9)
  1. DURAGESIC [Suspect]
     Active Substance: FENTANYL
     Indication: MUSCLE DISORDER
     Route: 062
  2. TRAMADOL. [Suspect]
     Active Substance: TRAMADOL
     Indication: SPINAL DISORDER
     Route: 048
  3. TRILEPTAL [Suspect]
     Active Substance: OXCARBAZEPINE
     Indication: NEURALGIA
     Route: 065
  4. DURAGESIC [Suspect]
     Active Substance: FENTANYL
     Indication: MUSCLE DISORDER
     Route: 062
     Dates: start: 1990
  5. TRAMADOL. [Suspect]
     Active Substance: TRAMADOL
     Indication: MUSCLE DISORDER
     Route: 048
  6. DURAGESIC [Suspect]
     Active Substance: FENTANYL
     Indication: SPINAL DISORDER
     Route: 062
  7. DURAGESIC [Suspect]
     Active Substance: FENTANYL
     Indication: MUSCLE DISORDER
     Route: 062
  8. DURAGESIC [Suspect]
     Active Substance: FENTANYL
     Indication: SPINAL DISORDER
     Route: 062
     Dates: start: 1990
  9. DURAGESIC [Suspect]
     Active Substance: FENTANYL
     Indication: SPINAL DISORDER
     Route: 062

REACTIONS (9)
  - Adrenal disorder [Not Recovered/Not Resolved]
  - Product adhesion issue [Not Recovered/Not Resolved]
  - Road traffic accident [Unknown]
  - Pain [Not Recovered/Not Resolved]
  - Disability [Not Recovered/Not Resolved]
  - Wrong technique in product usage process [Unknown]
  - Intervertebral disc disorder [Not Recovered/Not Resolved]
  - Hyperhidrosis [Not Recovered/Not Resolved]
  - Drug ineffective [Unknown]

NARRATIVE: CASE EVENT DATE: 1990
